FAERS Safety Report 5371799-5 (Version None)
Quarter: 2007Q2

REPORT INFORMATION
  Report Type: 
  Country: None (occurrence: None)
  Receive Date: 20070627
  Receipt Date: 20070620
  Transmission Date: 20071010
  Serious: Yes (Death, Hospitalization)
  Sender: FDA-Public Use
  Company Number: US-JNJFOC-20070604780

PATIENT
  Sex: Female
  Weight: 54.43 kg

DRUGS (3)
  1. EXTRA STRENGTH TYLENOL [Suspect]
     Indication: INSOMNIA
     Dosage: UNKNOWN
  2. ALCOHOL [Suspect]
     Indication: DRUG USE FOR UNKNOWN INDICATION
     Dosage: UNKNOWN
  3. STIMULANT [Suspect]
     Indication: DRUG USE FOR UNKNOWN INDICATION
     Dosage: UNKNOWN

REACTIONS (3)
  - BRAIN OEDEMA [None]
  - HEPATOCELLULAR DAMAGE [None]
  - INCORRECT DOSE ADMINISTERED [None]
